FAERS Safety Report 8924042 (Version 1)
Quarter: 2012Q4

REPORT INFORMATION
  Report Type: Spontaneous
  Country: US (occurrence: None)
  Receive Date: 20121121
  Receipt Date: 20121121
  Transmission Date: 20130627
  Serious: Yes (Hospitalization, Other)
  Sender: FDA-Public Use
  Company Number: None

PATIENT
  Age: 49 Year
  Sex: Female

DRUGS (1)
  1. COPAXONE 20MG TEVA NEUROSCIENCE [Suspect]
     Route: 058
     Dates: start: 20120814

REACTIONS (4)
  - Hypoaesthesia oral [None]
  - Arthropathy [None]
  - Muscle spasms [None]
  - Dyskinesia [None]
